FAERS Safety Report 9957942 (Version 2)
Quarter: 2014Q1

REPORT INFORMATION
  Report Type: Spontaneous
  Country: US (occurrence: US)
  Receive Date: 20140304
  Receipt Date: 20140304
  Transmission Date: 20141002
  Serious: No
  Sender: FDA-Public Use
  Company Number: US-ABBVIE-13P-163-1062663-00

PATIENT
  Age: 50 Year
  Sex: Female

DRUGS (10)
  1. HUMIRA [Suspect]
     Indication: COLITIS ULCERATIVE
     Route: 050
     Dates: start: 20130313, end: 20130313
  2. HUMIRA [Suspect]
  3. HUMIRA [Suspect]
     Dates: start: 20130410
  4. HUMIRA [Suspect]
  5. LIALDA [Concomitant]
     Indication: COLITIS ULCERATIVE
  6. AMLODIPINE [Concomitant]
     Indication: HYPERTENSION
  7. ATENOLOL [Concomitant]
     Indication: HYPERTENSION
  8. SPIRONOLACTONE [Concomitant]
     Indication: FLUID RETENTION
  9. PRILOSEC [Concomitant]
     Indication: GASTROOESOPHAGEAL REFLUX DISEASE
  10. VITAMIN D [Concomitant]
     Indication: VITAMIN SUPPLEMENTATION

REACTIONS (15)
  - Injection site papule [Not Recovered/Not Resolved]
  - Injection site pain [Recovered/Resolved]
  - Injection site haemorrhage [Not Recovered/Not Resolved]
  - Wrong technique in drug usage process [Recovered/Resolved]
  - Incorrect dose administered [Recovered/Resolved]
  - Injection site extravasation [Recovered/Resolved]
  - Injection site pruritus [Not Recovered/Not Resolved]
  - Dermatitis contact [Not Recovered/Not Resolved]
  - Injection site erythema [Not Recovered/Not Resolved]
  - Arthralgia [Recovered/Resolved]
  - Joint warmth [Recovered/Resolved]
  - Erythema [Recovered/Resolved]
  - Abasia [Recovered/Resolved]
  - Colitis ulcerative [Recovered/Resolved]
  - Colitis ulcerative [Not Recovered/Not Resolved]
